FAERS Safety Report 14759784 (Version 1)
Quarter: 2018Q2

REPORT INFORMATION
  Report Type: Report from Study
  Country: US (occurrence: US)
  Receive Date: 20180413
  Receipt Date: 20180413
  Transmission Date: 20180711
  Serious: Yes (Death)
  Sender: FDA-Public Use
  Company Number: US-PFIZER INC-2018150140

PATIENT

DRUGS (5)
  1. CYTARABINE. [Suspect]
     Active Substance: CYTARABINE
     Dosage: 3.0 G/M2, CYCLIC, OVER 3 HOURS, ON DAYS 1-5
     Route: 042
  2. IDARUBICIN HCL [Suspect]
     Active Substance: IDARUBICIN HYDROCHLORIDE
     Dosage: 50 MG/M2, SINGLE DOSE ON DAY 3
  3. MERCAPTOPURINE. [Concomitant]
     Active Substance: MERCAPTOPURINE
     Dosage: 250 MG/M2, 4X/DAY, EVERY 6 HOURS, FOR FOUR DOSES
     Route: 048
  4. METHOTREXATE. [Concomitant]
     Active Substance: METHOTREXATE
     Dosage: 1000 MG/M2, BY 3 HOURS INFUSION
     Route: 042
  5. LEUCOVORIN. [Concomitant]
     Active Substance: LEUCOVORIN
     Dosage: 15 MG/M2, 4X/DAY, EVERY 6 HOURS, FOR NINE DOSES

REACTIONS (1)
  - Cardiac failure congestive [Fatal]
